FAERS Safety Report 4514978-9 (Version None)
Quarter: 2004Q4

REPORT INFORMATION
  Report Type: 
  Country: None (occurrence: None)
  Receive Date: 20041201
  Receipt Date: 20041123
  Transmission Date: 20050328
  Serious: Yes (Life-Threatening)
  Sender: FDA-Public Use
  Company Number: FR-BRISTOL-MYERS SQUIBB COMPANY-12774345

PATIENT
  Age: 70 Year
  Sex: Male
  Weight: 67 kg

DRUGS (6)
  1. TAXOL [Suspect]
     Route: 042
     Dates: start: 20040923, end: 20040923
  2. CARBOPLATIN [Suspect]
     Route: 042
     Dates: start: 20040923, end: 20040923
  3. PRIMPERAN [Concomitant]
  4. TRANXENE [Concomitant]
     Dosage: 20MG/2 ML
     Dates: start: 20040923, end: 20040927
  5. ZOPHREN [Concomitant]
     Dosage: 2 MG/ML
     Dates: start: 20040923, end: 20040927
  6. OMEPRAZOLE [Concomitant]
     Dates: start: 20040923, end: 20040927

REACTIONS (5)
  - HAEMATURIA [None]
  - NEUTROPENIA [None]
  - SEPSIS [None]
  - SHOCK [None]
  - THROMBOCYTOPENIA [None]
